APPROVED DRUG PRODUCT: KALETRA
Active Ingredient: LOPINAVIR; RITONAVIR
Strength: 200MG;50MG
Dosage Form/Route: TABLET;ORAL
Application: N021906 | Product #001 | TE Code: AB
Applicant: ABBVIE INC
Approved: Oct 28, 2005 | RLD: Yes | RS: Yes | Type: RX